FAERS Safety Report 4852866-9 (Version None)
Quarter: 2005Q4

REPORT INFORMATION
  Report Type: 
  Country: None (occurrence: None)
  Receive Date: 20051212
  Receipt Date: 20051205
  Transmission Date: 20060501
  Serious: Yes (Hospitalization, Other)
  Sender: FDA-Public Use
  Company Number: 2005-11-1195

PATIENT
  Age: 84 Year
  Sex: Male

DRUGS (1)
  1. CELESTAMINE TAB [Suspect]
     Indication: ARTHROPOD BITE
     Dosage: ORAL
     Route: 048

REACTIONS (6)
  - ARRHYTHMIA [None]
  - CARDIAC VALVE DISEASE [None]
  - DEMENTIA ALZHEIMER'S TYPE [None]
  - NERVOUS SYSTEM DISORDER [None]
  - PULMONARY OEDEMA [None]
  - THROMBOSIS [None]
